FAERS Safety Report 17291025 (Version 1)
Quarter: 2020Q1

REPORT INFORMATION
  Report Type: Report from Study
  Country: BE (occurrence: BE)
  Receive Date: 20200121
  Receipt Date: 20200121
  Transmission Date: 20200409
  Serious: Yes (Hospitalization)
  Sender: FDA-Public Use
  Company Number: BE-BAYER-2019-111074

PATIENT
  Sex: Male

DRUGS (4)
  1. NEXAVAR [Suspect]
     Active Substance: SORAFENIB
     Indication: HEPATOCELLULAR CARCINOMA
     Dosage: DAILY DOSE 800 MG
     Dates: start: 20190430, end: 20190531
  2. BACTRIM [Concomitant]
     Active Substance: SULFAMETHOXAZOLE\TRIMETHOPRIM
     Dosage: 1600/160 MG
  3. NEXAVAR [Suspect]
     Active Substance: SORAFENIB
     Indication: HEPATOCELLULAR CARCINOMA
     Dosage: 600 MG
     Dates: start: 20190606, end: 20200106
  4. EMCONCOR [Concomitant]
     Active Substance: BISOPROLOL FUMARATE
     Indication: HYPERTENSION
     Dosage: 5 MG

REACTIONS (22)
  - Weight decreased [Recovering/Resolving]
  - Varicocele [None]
  - Dry eye [Not Recovered/Not Resolved]
  - Palmar-plantar erythrodysaesthesia syndrome [Recovering/Resolving]
  - Hypertension [None]
  - Ascites [None]
  - Oral mucosal blistering [Recovered/Resolved]
  - Dysphonia [Recovering/Resolving]
  - Paraesthesia [None]
  - Headache [Recovering/Resolving]
  - Mucosal inflammation [Recovering/Resolving]
  - Varicose vein ruptured [None]
  - Fatigue [Recovering/Resolving]
  - Alopecia [Recovering/Resolving]
  - Hypertension [Recovering/Resolving]
  - Vascular pain [None]
  - Venous pressure [None]
  - Pulmonary oedema [None]
  - Mucosal inflammation [Recovering/Resolving]
  - Diarrhoea [Not Recovered/Not Resolved]
  - Bleeding varicose vein [None]
  - Poor quality sleep [Recovering/Resolving]

NARRATIVE: CASE EVENT DATE: 201905
